FAERS Safety Report 13337500 (Version 1)
Quarter: 2017Q1

REPORT INFORMATION
  Report Type: Spontaneous
  Country: US (occurrence: US)
  Receive Date: 20170315
  Receipt Date: 20170315
  Transmission Date: 20170428
  Serious: Yes (Other)
  Sender: FDA-Public Use
  Company Number: US-ELI_LILLY_AND_COMPANY-US201607007939

PATIENT
  Age: 74 Year
  Sex: Female

DRUGS (2)
  1. CYMBALTA [Suspect]
     Active Substance: DULOXETINE HYDROCHLORIDE
     Dosage: 60 MG, UNKNOWN
     Route: 065
     Dates: end: 20140303
  2. CYMBALTA [Suspect]
     Active Substance: DULOXETINE HYDROCHLORIDE
     Indication: DEPRESSION
     Dosage: UNK, UNKNOWN
     Route: 065

REACTIONS (16)
  - Vomiting [Unknown]
  - Seizure [Unknown]
  - Agitation [Unknown]
  - Fatigue [Unknown]
  - Sensory disturbance [Unknown]
  - Irritability [Unknown]
  - Hyperhidrosis [Unknown]
  - Neck pain [Unknown]
  - Dysphoria [Unknown]
  - Paraesthesia [Unknown]
  - Insomnia [Unknown]
  - Drug withdrawal syndrome [Unknown]
  - Suicidal ideation [Unknown]
  - Affect lability [Unknown]
  - Essential hypertension [Unknown]
  - Nausea [Unknown]

NARRATIVE: CASE EVENT DATE: 201404
